FAERS Safety Report 7438221-6 (Version None)
Quarter: 2011Q2

REPORT INFORMATION
  Report Type: 
  Country: None (occurrence: None)
  Receive Date: 20110421
  Receipt Date: 20110421
  Transmission Date: 20111010
  Serious: No
  Sender: FDA-Public Use
  Company Number: None

PATIENT
  Sex: Female

DRUGS (1)
  1. COPAXONE [Suspect]
     Indication: MULTIPLE SCLEROSIS
     Dosage: 20MG DAILY SUBCUTANEOUSLY
     Route: 058
     Dates: end: 20110321

REACTIONS (7)
  - PAIN [None]
  - NAUSEA [None]
  - HEADACHE [None]
  - PYREXIA [None]
  - DIABETES MELLITUS INADEQUATE CONTROL [None]
  - LETHARGY [None]
  - FLUSHING [None]
